FAERS Safety Report 5829971-3 (Version None)
Quarter: 2008Q3

REPORT INFORMATION
  Report Type: 
  Country: None (occurrence: None)
  Receive Date: 20080731
  Receipt Date: 20080731
  Transmission Date: 20090109
  Serious: No
  Sender: FDA-Public Use
  Company Number: None

PATIENT
  Sex: Female

DRUGS (1)
  1. HUMIRA [Suspect]
     Dosage: 40 MG/0.8ML SC EVERY OTHER WEEK
     Route: 058
     Dates: start: 20080315

REACTIONS (3)
  - BONE NEOPLASM MALIGNANT [None]
  - BREAST CANCER [None]
  - LUNG NEOPLASM MALIGNANT [None]
